FAERS Safety Report 8903918 (Version 1)
Quarter: 2012Q4

REPORT INFORMATION
  Report Type: 
  Country: IN (occurrence: IN)
  Receive Date: 20121112
  Receipt Date: 20121112
  Transmission Date: 20130627
  Serious: Yes (Other)
  Sender: FDA-Public Use
  Company Number: IN-MYLANLABS-2012S1022689

PATIENT
  Age: 3 Year
  Sex: Male

DRUGS (6)
  1. STREPTOMYCIN [Suspect]
     Indication: MENINGITIS TUBERCULOUS
     Route: 065
  2. RIFAMPICIN [Suspect]
     Indication: MENINGITIS TUBERCULOUS
     Route: 065
  3. PYRAZINAMIDE [Suspect]
     Indication: MENINGITIS TUBERCULOUS
     Route: 065
  4. ETHAMBUTOL [Suspect]
     Indication: MENINGITIS TUBERCULOUS
     Route: 065
  5. ISONIAZID [Suspect]
     Indication: MENINGITIS TUBERCULOUS
     Route: 065
  6. CIPROFLOXACIN [Suspect]
     Indication: MENINGITIS TUBERCULOUS
     Route: 065

REACTIONS (3)
  - Tuberculoma of central nervous system [Recovering/Resolving]
  - Paradoxical drug reaction [Recovering/Resolving]
  - Diabetes insipidus [Unknown]
